FAERS Safety Report 7983941 (Version 3)
Quarter: 2013Q1

REPORT INFORMATION
  Report Type: Spontaneous
  Country: US (occurrence: US)
  Receive Date: 20110609
  Receipt Date: 20130313
  Transmission Date: 20140127
  Serious: Yes (Hospitalization, Other)
  Sender: FDA-Public Use
  Company Number: US-ASTRAZENECA-2011SE33828

PATIENT
  Age: 55 Year
  Sex: Female

DRUGS (7)
  1. NEXIUM [Suspect]
     Route: 048
  2. TOPROL XL [Suspect]
     Dosage: GENERIC
     Route: 048
  3. TOPROL XL [Suspect]
     Route: 048
  4. PRILOSEC [Suspect]
     Route: 048
  5. ALPRAZOLAM [Concomitant]
  6. HYDROCHLOROTHIAZIDE [Concomitant]
  7. NEURONTON [Concomitant]

REACTIONS (8)
  - Barrett^s oesophagus [Unknown]
  - Transient ischaemic attack [Unknown]
  - Pain [Unknown]
  - Palpitations [Unknown]
  - Venous insufficiency [Unknown]
  - Local swelling [Unknown]
  - Drug dose omission [Unknown]
  - Drug ineffective [Unknown]
